FAERS Safety Report 5845406-9 (Version None)
Quarter: 2008Q3

REPORT INFORMATION
  Report Type: 
  Country: None (occurrence: None)
  Receive Date: 20080731
  Receipt Date: 20080527
  Transmission Date: 20090109
  Serious: No
  Sender: FDA-Public Use
  Company Number: US200805005408

PATIENT
  Age: 62 Year
  Sex: Female
  Weight: 59.9 kg

DRUGS (14)
  1. BYETTA [Suspect]
     Indication: TYPE 2 DIABETES MELLITUS
     Dosage: 5 UG, 2/D, SUBCUTANEOUS ; 10 UG, 2/D, SUBCUTANEOUS
     Route: 058
     Dates: start: 20070101, end: 20080101
  2. BYETTA [Suspect]
     Indication: TYPE 2 DIABETES MELLITUS
     Dosage: 5 UG, 2/D, SUBCUTANEOUS ; 10 UG, 2/D, SUBCUTANEOUS
     Route: 058
     Dates: start: 20080101
  3. GLUCOPHAGE /USA/ (METFORMIN HYDROCHLORIDE) [Concomitant]
  4. PRANDIN /USA/ (REPAGLINIDE) [Concomitant]
  5. PROZAC [Concomitant]
  6. DIOVAN (HYDROCHLOROTHIAZIDE, VALSARTAN) [Concomitant]
  7. ATENOLOL [Concomitant]
  8. SINGULAIR [Concomitant]
  9. FEXOFENADINE HCL [Concomitant]
  10. LIPITOR [Concomitant]
  11. NASONEX [Concomitant]
  12. ADVAIR DISKUS 100/50 [Concomitant]
  13. MULTIVITAMIN [Concomitant]
  14. ASPIRIN [Concomitant]

REACTIONS (6)
  - BLOOD GLUCOSE DECREASED [None]
  - CONFUSIONAL STATE [None]
  - DECREASED APPETITE [None]
  - HYPERHIDROSIS [None]
  - TREMOR [None]
  - WEIGHT DECREASED [None]
